FAERS Safety Report 24282516 (Version 1)
Quarter: 2024Q3

REPORT INFORMATION
  Report Type: Report from Study
  Country: GB (occurrence: GB)
  Receive Date: 20240904
  Receipt Date: 20240904
  Transmission Date: 20241017
  Serious: Yes (Other)
  Sender: TEVA
  Company Number: GB-TEVA-VS-3235135

PATIENT
  Age: 66 Year
  Sex: Female

DRUGS (1)
  1. AJOVY [Suspect]
     Active Substance: FREMANEZUMAB-VFRM
     Indication: Migraine
     Dosage: 225MG/1.5ML PFP
     Route: 058
     Dates: start: 20221022

REACTIONS (4)
  - Confusional state [Unknown]
  - Migraine [Unknown]
  - Visual impairment [Unknown]
  - Aphasia [Unknown]
